FAERS Safety Report 4618315-0 (Version None)
Quarter: 2005Q1

REPORT INFORMATION
  Report Type: 
  Country: None (occurrence: None)
  Receive Date: 20050323
  Receipt Date: 20050307
  Transmission Date: 20050727
  Serious: Yes (Other)
  Sender: FDA-Public Use
  Company Number: 2005EU000445

PATIENT
  Age: 18 Year
  Sex: Male

DRUGS (4)
  1. PROGRAF [Suspect]
     Indication: RENAL TRANSPLANT
     Dosage: UNKNOWN/D
  2. GLUCOCORTICOIDS [Concomitant]
  3. MYCOPHENOLATE MOFETIL (MYCOPHENOLATE MOFETIL) [Concomitant]
  4. AZATHIOPRINE [Concomitant]

REACTIONS (5)
  - COMPLICATIONS OF TRANSPLANT SURGERY [None]
  - CONDITION AGGRAVATED [None]
  - JUVENILE ARTHRITIS [None]
  - POST PROCEDURAL DIARRHOEA [None]
  - THERAPY NON-RESPONDER [None]
